FAERS Safety Report 11599890 (Version 1)
Quarter: 2015Q4

REPORT INFORMATION
  Report Type: Spontaneous
  Country: US (occurrence: US)
  Receive Date: 20151006
  Receipt Date: 20151006
  Transmission Date: 20160304
  Serious: No
  Sender: FDA-Public Use
  Company Number: US-AMGEN-USASP2015028425

PATIENT
  Age: 78 Year
  Sex: Female

DRUGS (10)
  1. PREDNISONE. [Concomitant]
     Active Substance: PREDNISONE
     Dosage: 2 MG, QD
     Dates: start: 1975
  2. LASIX [Concomitant]
     Active Substance: FUROSEMIDE
  3. TRAMADOL. [Concomitant]
     Active Substance: TRAMADOL
     Indication: PAIN
  4. CALCITROL                          /00508501/ [Concomitant]
     Active Substance: CALCIUM CARBONATE\ERGOCALCIFEROL\RETINOL
  5. HYDROXYCHLOROQUINE [Concomitant]
     Active Substance: HYDROXYCHLOROQUINE
     Dosage: 400 MG, QD AT NIGHT
  6. SYNTHROID [Concomitant]
     Active Substance: LEVOTHYROXINE SODIUM
     Dosage: 112 MUG, QD
  7. LISINOPRIL. [Concomitant]
     Active Substance: LISINOPRIL
     Indication: HYPERTENSION
     Dosage: 30 MG, QD
  8. PROLIA [Suspect]
     Active Substance: DENOSUMAB
     Indication: HIP FRACTURE
     Dosage: UNK
     Route: 065
     Dates: start: 201408
  9. METOPROLOL [Concomitant]
     Active Substance: METOPROLOL
  10. VITAMIN D                          /00107901/ [Concomitant]
     Active Substance: ERGOCALCIFEROL

REACTIONS (2)
  - Blood calcium increased [Not Recovered/Not Resolved]
  - Pain [Unknown]
